FAERS Safety Report 7163591-6 (Version None)
Quarter: 2010Q4

REPORT INFORMATION
  Report Type: 
  Country: None (occurrence: None)
  Receive Date: 20101215
  Receipt Date: 20100514
  Transmission Date: 20110411
  Serious: Yes (Other)
  Sender: FDA-Public Use
  Company Number: US-PFIZER INC-2010061869

PATIENT
  Sex: Male
  Weight: 77 kg

DRUGS (7)
  1. NEURONTIN [Suspect]
     Indication: PAIN IN EXTREMITY
     Dosage: 1100 MG, 3X/DAY
     Route: 048
  2. LYRICA [Suspect]
     Indication: PAIN
     Dosage: UNK
     Route: 048
  3. GABAPENTIN [Suspect]
     Indication: PAIN
     Dosage: UNK
     Route: 048
  4. HYDROCODONE [Suspect]
     Indication: PAIN
     Dosage: 650 MG, AS NEEDED
     Route: 048
  5. LISINOPRIL [Concomitant]
     Indication: HYPERTENSION
     Dosage: 20 MG, 1X/DAY
  6. SIMVASTATIN [Concomitant]
     Indication: BLOOD CHOLESTEROL INCREASED
     Dosage: 20 MG, 1X/DAY
  7. ACETYLSALICYLIC ACID [Concomitant]
     Dosage: DAILY

REACTIONS (6)
  - ABDOMINAL DISCOMFORT [None]
  - BALANCE DISORDER [None]
  - HAEMATOCHEZIA [None]
  - SOMNOLENCE [None]
  - STOMATITIS [None]
  - VISUAL IMPAIRMENT [None]
